FAERS Safety Report 12945626 (Version 1)
Quarter: 2016Q4

REPORT INFORMATION
  Report Type: Spontaneous
  Country: US (occurrence: US)
  Receive Date: 20161115
  Receipt Date: 20161115
  Transmission Date: 20170207
  Serious: Yes (Other)
  Sender: FDA-Public Use
  Company Number: US-SHIRE-US201616386

PATIENT
  Sex: Female

DRUGS (1)
  1. XIIDRA [Suspect]
     Active Substance: LIFITEGRAST
     Indication: PRODUCT USED FOR UNKNOWN INDICATION
     Dosage: 2 GTT (1 DROP EACH EYE), 2X/DAY:BID
     Route: 047
     Dates: start: 2016, end: 2016

REACTIONS (2)
  - Eye haemorrhage [Unknown]
  - Eye discharge [Unknown]

NARRATIVE: CASE EVENT DATE: 2016
